FAERS Safety Report 8450302-7 (Version None)
Quarter: 2012Q2

REPORT INFORMATION
  Report Type: 
  Country: None (occurrence: None)
  Receive Date: 20120620
  Receipt Date: 20120611
  Transmission Date: 20120825
  Serious: Yes (Hospitalization)
  Sender: FDA-Public Use
  Company Number: US-BAYER-2012-018951

PATIENT
  Age: 44 Year
  Sex: Female
  Weight: 64.399 kg

DRUGS (24)
  1. YASMIN [Suspect]
     Indication: CONTRACEPTION
  2. AMPICILLIN [Concomitant]
     Dosage: 500 MG, CAPSULES
     Dates: start: 20090625, end: 20090916
  3. YASMIN [Suspect]
     Indication: ACNE
     Dosage: UNK
     Dates: start: 20050601, end: 20090901
  4. DROSPIRENONE AND ETHINYL ESTRADIOL [Suspect]
     Indication: ACNE
     Dosage: UNK
     Dates: start: 20090916, end: 20091001
  5. DROSPIRENONE AND ETHINYL ESTRADIOL [Suspect]
     Indication: PREMENSTRUAL SYNDROME
  6. MINOCYCLINE HCL [Concomitant]
     Dosage: UNK
     Dates: start: 20090611
  7. FLUOCINOLONE ACETONIDE [Concomitant]
     Dosage: UNK
     Dates: start: 20090611
  8. HYDROCODONE BITARTRATE AND ACETAMINOPHEN [Concomitant]
     Indication: CONTRACEPTION
  9. YAZ [Suspect]
     Indication: ACNE
  10. YAZ [Suspect]
  11. YASMIN [Suspect]
  12. DROSPIRENONE AND ETHINYL ESTRADIOL [Suspect]
  13. SERTRALINE HYDROCHLORIDE [Concomitant]
     Dosage: 100 MG, UNK
     Dates: start: 20090723
  14. DROSPIRENONE AND ETHINYL ESTRADIOL [Suspect]
     Indication: CONTRACEPTION
  15. IBUPROFEN [Concomitant]
     Dosage: TAKEN AS NEEDED
  16. ANTI-ACNE PREPARATIONS FOR TOPICAL USE [Concomitant]
     Dosage: UNK
     Dates: start: 20090611
  17. SERTRALINE HYDROCHLORIDE [Concomitant]
     Dosage: 100 MG, UNK
     Dates: start: 20090916
  18. YAZ [Suspect]
     Indication: PREMENSTRUAL SYNDROME
  19. YASMIN [Suspect]
     Indication: PREMENSTRUAL SYNDROME
  20. METHYLPREDNISOLONE [Concomitant]
     Dosage: 4 MG, UNK
     Dates: start: 20090610
  21. HYDROCODONE BITARTRATE AND ACETAMINOPHEN [Concomitant]
     Indication: ACNE
     Dosage: 5/500 MG
     Dates: start: 20090726
  22. YAZ [Suspect]
     Indication: CONTRACEPTION
     Dosage: UNK
     Dates: start: 20050601, end: 20090901
  23. ANTIBIOTICS [Concomitant]
     Dosage: UNK
     Dates: start: 20090101
  24. HYDROCODONE BITARTRATE AND ACETAMINOPHEN [Concomitant]
     Indication: PREMENSTRUAL SYNDROME

REACTIONS (3)
  - PAIN [None]
  - CHOLECYSTITIS [None]
  - CHOLELITHIASIS [None]
